FAERS Safety Report 4644822-0 (Version None)
Quarter: 2005Q2

REPORT INFORMATION
  Report Type: 
  Country: None (occurrence: None)
  Receive Date: 20050422
  Receipt Date: 20050418
  Transmission Date: 20051028
  Serious: Yes (Hospitalization)
  Sender: FDA-Public Use
  Company Number: 2005CG00764

PATIENT
  Age: 73 Year
  Sex: Male

DRUGS (3)
  1. NEXIUM [Suspect]
     Dates: start: 20041224, end: 20050216
  2. ATARAX [Suspect]
     Dosage: 200  MG DAILY PO
     Route: 048
     Dates: start: 20041217, end: 20050116
  3. AUGMENTIN '125' [Suspect]
     Dosage: 1 G DAILY PO
     Route: 048
     Dates: end: 20050124

REACTIONS (4)
  - CHOLESTASIS [None]
  - EOSINOPHILIA [None]
  - HEPATIC FAILURE [None]
  - HEPATIC NECROSIS [None]
